FAERS Safety Report 4526406-8 (Version None)
Quarter: 2004Q4

REPORT INFORMATION
  Report Type: 
  Country: None (occurrence: None)
  Receive Date: 20041214
  Receipt Date: 20041203
  Transmission Date: 20050328
  Serious: Yes (Hospitalization)
  Sender: FDA-Public Use
  Company Number: DE-ROCHE-388134

PATIENT
  Age: 49 Year
  Sex: Female

DRUGS (8)
  1. INTERFERON ALFA-2A [Suspect]
     Indication: METASTATIC MALIGNANT MELANOMA
     Dosage: DAY 11 AND 18
     Route: 058
     Dates: start: 20041022, end: 20041127
  2. DACARBAZINE [Suspect]
     Indication: METASTATIC MALIGNANT MELANOMA
     Dosage: ON DAY 1
     Route: 058
     Dates: start: 20041011
  3. MORPHINE SULFATE [Concomitant]
     Indication: PAIN
     Dates: start: 20040915
  4. ROFECOXIB [Concomitant]
     Indication: PAIN
     Dates: start: 20040915
  5. GABAPENTIN [Concomitant]
     Indication: PAIN
     Dates: start: 20040915
  6. AMITRIPTYLINE HCL [Concomitant]
     Indication: PAIN
     Dosage: FREQ = SID
     Dates: start: 20040915
  7. PANTOPRAZOLE [Concomitant]
     Dosage: FREQ = SID
     Dates: start: 20040915
  8. ZOLPIDEM TARTRATE [Concomitant]
     Indication: INSOMNIA
     Dosage: FREQ = SID
     Dates: start: 20040915

REACTIONS (2)
  - ARTERIAL HAEMORRHAGE [None]
  - ASCITES [None]
